FAERS Safety Report 16905409 (Version 2)
Quarter: 2019Q4

REPORT INFORMATION
  Report Type: Spontaneous
  Country: US (occurrence: US)
  Receive Date: 20191010
  Receipt Date: 20191017
  Transmission Date: 20200122
  Serious: No
  Sender: FDA-Public Use
  Company Number: US-TEVA-2019-US-1121215

PATIENT
  Sex: Female

DRUGS (3)
  1. ALBUTEROL SULFATE HFA 90 MCG [Suspect]
     Active Substance: ALBUTEROL SULFATE
     Indication: DYSPNOEA
  2. VENTOLIN HFA [Concomitant]
     Active Substance: ALBUTEROL SULFATE
     Route: 065
  3. ALBUTEROL SULFATE HFA 90 MCG [Suspect]
     Active Substance: ALBUTEROL SULFATE
     Indication: ASTHMA
     Route: 065
     Dates: start: 20190831

REACTIONS (2)
  - Drug ineffective [Unknown]
  - Drug delivery system malfunction [Unknown]

NARRATIVE: CASE EVENT DATE: 20190831
